FAERS Safety Report 9514621 (Version 1)
Quarter: 2013Q1

REPORT INFORMATION
  Report Type: Spontaneous
  Country: US (occurrence: None)
  Receive Date: 20130305
  Receipt Date: 20130305
  Transmission Date: 20140127
  Serious: Yes (Other)
  Sender: FDA-Public Use
  Company Number: 163-21880-12112457

PATIENT
  Age: 66 Year
  Sex: Male

DRUGS (10)
  1. REVLIMID [Suspect]
     Indication: PLASMA CELL MYELOMA
     Dosage: 25 MG, 1 IN 1 D, PO
     Route: 048
     Dates: start: 201005
  2. ACYCLOVIR (ACICLOVIR) (CAPSULES) [Concomitant]
  3. ATENOLOL (ATENOLOL) (TABLETS) [Concomitant]
  4. CARISOPRODOL (CARISOPRODOL) (UNKNOWN) [Concomitant]
  5. GLUCOSAMINE AND CHONDROITIN (JORIX) (UNKNOWN) [Concomitant]
  6. NITROGLYCERIN (GLYCERYL TRINITRATE) (UNKNOWN)? [Concomitant]
  7. OXYCODONE (OXYCODONE) (UNKNOWN) (OXYCODONE) [Concomitant]
  8. POTASSIUM (POTASSIUM) (UNKNOWN) [Concomitant]
  9. PRILOSEC (OMEPRAZOLE) (CAPSULES) [Concomitant]
  10. SIMVASTATIN [Concomitant]

REACTIONS (2)
  - Cellulitis [None]
  - Conjunctivitis infective [None]
